FAERS Safety Report 18212840 (Version 2)
Quarter: 2020Q4

REPORT INFORMATION
  Report Type: Spontaneous
  Country: US (occurrence: US)
  Receive Date: 20200831
  Receipt Date: 20201112
  Transmission Date: 20210113
  Serious: Yes (Other)
  Sender: FDA-Public Use
  Company Number: US-PFIZER INC-2019494567

PATIENT
  Age: 66 Year
  Sex: Female

DRUGS (2)
  1. LYRICA [Suspect]
     Active Substance: PREGABALIN
     Indication: PAIN
     Dosage: 600 MG, DAILY (150 MG CAPS 1 CAPS IN AM 1 AT LUNCH AND 2 IN PM WITH DINNER)/(1 CAPSULE BY MOUTH IN T
     Route: 048
  2. LYRICA [Suspect]
     Active Substance: PREGABALIN
     Dosage: 3 DF, DAILY(3 PILLS A DAY)

REACTIONS (3)
  - Rib fracture [Unknown]
  - Feeling abnormal [Unknown]
  - Intentional product use issue [Unknown]
